FAERS Safety Report 9526195 (Version 2)
Quarter: 2013Q4

REPORT INFORMATION
  Report Type: Report from Study
  Country: BD (occurrence: BD)
  Receive Date: 20130916
  Receipt Date: 20131001
  Transmission Date: 20140711
  Serious: Yes (Death)
  Sender: FDA-Public Use
  Company Number: PHHY2013BD102456

PATIENT
  Age: 67 Year
  Sex: Male
  Weight: 58 kg

DRUGS (3)
  1. ACLASTA [Suspect]
     Indication: OSTEOPOROSIS
     Dosage: ONCE YEARLY
     Route: 042
     Dates: start: 20130414
  2. ANTIHYPERTENSIVES [Concomitant]
     Indication: HYPERTENSION
     Dosage: UNK UKN, QD
     Route: 048
     Dates: start: 20110310
  3. ANTICOAGULANTS [Concomitant]

REACTIONS (11)
  - Cerebrovascular accident [Fatal]
  - Fall [Fatal]
  - Motor dysfunction [Fatal]
  - Aphasia [Fatal]
  - Balance disorder [Fatal]
  - Gait disturbance [Fatal]
  - Dysphagia [Fatal]
  - Confusional state [Fatal]
  - Disorientation [Fatal]
  - Dysarthria [Fatal]
  - Dizziness [Fatal]
